FAERS Safety Report 25161199 (Version 1)
Quarter: 2025Q2

REPORT INFORMATION
  Report Type: Spontaneous
  Country: FR (occurrence: FR)
  Receive Date: 20250404
  Receipt Date: 20250404
  Transmission Date: 20250717
  Serious: Yes (Death, Other)
  Sender: PFIZER
  Company Number: None

PATIENT
  Age: 55 Year
  Sex: Female
  Weight: 80 kg

DRUGS (6)
  1. CYTARABINE [Suspect]
     Active Substance: CYTARABINE
     Indication: Stem cell transplant
  2. ETOPOSIDE [Suspect]
     Active Substance: ETOPOSIDE
     Indication: Stem cell transplant
  3. BUSULFAN [Suspect]
     Active Substance: BUSULFAN
     Indication: Bone marrow transplant
     Route: 042
     Dates: start: 20160715, end: 20160717
  4. TEPADINA [Suspect]
     Active Substance: THIOTEPA
     Indication: Bone marrow transplant
     Route: 042
     Dates: start: 20160712, end: 20160715
  5. MELPHALAN [Suspect]
     Active Substance: MELPHALAN
     Indication: Stem cell transplant
  6. CYCLOPHOSPHAMIDE [Concomitant]
     Active Substance: CYCLOPHOSPHAMIDE
     Indication: Bone marrow transplant
     Route: 042
     Dates: start: 20160718, end: 20160719

REACTIONS (8)
  - Dermatitis bullous [Fatal]
  - Septic shock [Fatal]
  - Toxic skin eruption [Fatal]
  - Mucosal inflammation [Fatal]
  - Skin toxicity [Fatal]
  - Bone marrow failure [Fatal]
  - Pyrexia [Fatal]
  - Off label use [Unknown]

NARRATIVE: CASE EVENT DATE: 20160718
